FAERS Safety Report 16108345 (Version 2)
Quarter: 2019Q2

REPORT INFORMATION
  Report Type: Spontaneous
  Country: FR (occurrence: FR)
  Receive Date: 20190322
  Receipt Date: 20190411
  Transmission Date: 20190711
  Serious: Yes (Other)
  Sender: FDA-Public Use
  Company Number: FR-B.I. PHARMACEUTICALS,INC./RIDGEFIELD-2019-12-000929

PATIENT
  Age: 6 Month
  Sex: Male
  Weight: 7 kg

DRUGS (5)
  1. PROPRANOLOL [Concomitant]
     Active Substance: PROPRANOLOL HYDROCHLORIDE
     Indication: PRODUCT USED FOR UNKNOWN INDICATION
     Route: 065
  2. CATAPRESSAN [Suspect]
     Active Substance: CLONIDINE
     Dosage: UNIT DOSE: 30 MCG EVERY 12 HOURS (I.E. 8.8 MCG/KG/DAY) FROM 21 TO 25- FEB-2019.
     Route: 050
     Dates: start: 20190221
  3. CATAPRESSAN [Suspect]
     Active Substance: CLONIDINE
     Indication: AGITATION
     Dosage: UNIT DOSE:0.9MCG/KG/DAY WITH PROGRESSIVE DECREASE AT 0.2MCG/KG/DAY FROM 17 TO 21-FEB-2019.
     Route: 042
     Dates: start: 20190217
  4. CATAPRESSAN [Suspect]
     Active Substance: CLONIDINE
     Dosage: UNIT DOSE: 25 MCG EVERY 12 HOURS (I.E. 6.6 MCG/KG/DAY) FROM 25- FEB-2019.
     Route: 050
     Dates: start: 20190225
  5. CATAPRESSAN [Suspect]
     Active Substance: CLONIDINE
     Dosage: UNIT DOSE: DOUBLE DOSE OF CATAPRESSAN I.E 50MCG (7MCG/KG) PER ENTERAL ROUTE.
     Route: 050
     Dates: start: 20190227, end: 20190227

REACTIONS (8)
  - Bradypnoea [Recovered/Resolved]
  - Hyperkalaemia [Recovered/Resolved]
  - Hypertension [Recovered/Resolved]
  - Metabolic acidosis [Recovered/Resolved]
  - Depressed level of consciousness [Recovered/Resolved]
  - Overdose [Unknown]
  - Apnoea [Recovered/Resolved]
  - Somnolence [Recovered/Resolved]

NARRATIVE: CASE EVENT DATE: 20190227
